FAERS Safety Report 8374924-7 (Version None)
Quarter: 2012Q2

REPORT INFORMATION
  Report Type: 
  Country: None (occurrence: None)
  Receive Date: 20120521
  Receipt Date: 20120508
  Transmission Date: 20120825
  Serious: Yes (Hospitalization)
  Sender: FDA-Public Use
  Company Number: NL-ROCHE-1030138

PATIENT
  Sex: Female
  Weight: 91 kg

DRUGS (22)
  1. VINCRISTINE [Suspect]
     Indication: DIFFUSE LARGE B-CELL LYMPHOMA
     Route: 042
     Dates: start: 20111003
  2. PREDNISONE TAB [Suspect]
     Indication: DIFFUSE LARGE B-CELL LYMPHOMA
     Route: 048
     Dates: start: 20111003
  3. NEULASTA [Concomitant]
  4. FLUNITRAZEPAM [Concomitant]
  5. DAGRAVIT [Concomitant]
  6. ASCORBIC ACID/ZINC NOS [Concomitant]
  7. MABTHERA [Suspect]
     Indication: DIFFUSE LARGE B-CELL LYMPHOMA
     Route: 042
     Dates: start: 20111003
  8. DOXORUBICIN HCL [Suspect]
     Indication: DIFFUSE LARGE B-CELL LYMPHOMA
     Route: 042
     Dates: start: 20111003
  9. VALACICLOVIR [Concomitant]
     Dates: start: 20110720, end: 20111101
  10. FLUTICASONE PROPIONATE [Concomitant]
  11. ONDANSETRON [Concomitant]
  12. VITAMIN B COMPLEX CAP [Concomitant]
  13. FLUVOXAMINE MALEATE [Concomitant]
  14. HALOPERIDOL [Concomitant]
  15. FILGRASTIM [Suspect]
     Indication: DIFFUSE LARGE B-CELL LYMPHOMA
     Route: 058
     Dates: start: 20111004
  16. CYCLOPHOSPHAMIDE [Suspect]
     Indication: DIFFUSE LARGE B-CELL LYMPHOMA
     Route: 042
     Dates: start: 20111003
  17. THYROX [Concomitant]
  18. LORAZEPAM [Concomitant]
  19. ACETAMINOPHEN [Concomitant]
     Dosage: AS REQUIRED
  20. OMEPRAZOLE [Concomitant]
  21. METOCLOPRAMIDE [Concomitant]
  22. COTRIM [Concomitant]
     Dates: start: 20110720, end: 20111101

REACTIONS (1)
  - MALAISE [None]
